FAERS Safety Report 12787797 (Version 1)
Quarter: 2016Q3

REPORT INFORMATION
  Report Type: Spontaneous
  Country: US (occurrence: US)
  Receive Date: 20160928
  Receipt Date: 20160928
  Transmission Date: 20161109
  Serious: No
  Sender: FDA-Public Use
  Company Number: US-PERRIGO-16US018811

PATIENT
  Age: 46 Year
  Sex: Female
  Weight: 58.96 kg

DRUGS (2)
  1. IMIQUIMOD. [Suspect]
     Active Substance: IMIQUIMOD
     Dosage: RICE GRAIN SIZE, SINGLE
     Route: 061
     Dates: start: 20160801, end: 20160801
  2. IMIQUIMOD. [Suspect]
     Active Substance: IMIQUIMOD
     Indication: BASAL CELL CARCINOMA
     Dosage: RICE GRAIN SIZE, QD, 4 TIMES WEEKLY
     Route: 061
     Dates: start: 20160701, end: 20160726

REACTIONS (12)
  - Administration site swelling [Recovering/Resolving]
  - Application site papules [Recovering/Resolving]
  - Hyperhidrosis [Recovering/Resolving]
  - Fatigue [Recovering/Resolving]
  - Muscle spasms [Recovering/Resolving]
  - Back pain [Recovering/Resolving]
  - Application site pain [Recovering/Resolving]
  - Application site erythema [Recovering/Resolving]
  - Application site irritation [Recovering/Resolving]
  - Off label use [Recovered/Resolved]
  - Application site dryness [Recovering/Resolving]
  - Nausea [Recovering/Resolving]

NARRATIVE: CASE EVENT DATE: 20160701
